FAERS Safety Report 20161927 (Version 1)
Quarter: 2021Q4

REPORT INFORMATION
  Report Type: Other
  Country: FR (occurrence: FR)
  Receive Date: 20211208
  Receipt Date: 20211208
  Transmission Date: 20220303
  Serious: Yes (Hospitalization)
  Sender: FDA-Public Use
  Company Number: None

PATIENT
  Age: 46 Year
  Sex: Male
  Weight: 96 kg

DRUGS (1)
  1. FETROJA [Suspect]
     Active Substance: CEFIDEROCOL SULFATE TOSYLATE
     Indication: Infection
     Dosage: 6 G EVERY 1 DAY (2G*3X/J)
     Route: 042
     Dates: start: 20211111, end: 20211118

REACTIONS (1)
  - Hepatic cytolysis [Recovered/Resolved with Sequelae]

NARRATIVE: CASE EVENT DATE: 20211116
